FAERS Safety Report 8387357-4 (Version None)
Quarter: 2012Q2

REPORT INFORMATION
  Report Type: 
  Country: None (occurrence: None)
  Receive Date: 20120525
  Receipt Date: 20120514
  Transmission Date: 20120825
  Serious: Yes (Other)
  Sender: FDA-Public Use
  Company Number: US-ROCHE-786633

PATIENT
  Sex: Female
  Weight: 74.8 kg

DRUGS (2)
  1. ACCUTANE [Suspect]
     Indication: ACNE CYSTIC
     Route: 065
     Dates: start: 19950801, end: 19950901
  2. ACCUTANE [Suspect]
     Dosage: FOR 05 MONTHS
     Route: 065

REACTIONS (7)
  - ACNE [None]
  - INFLAMMATORY BOWEL DISEASE [None]
  - INJURY [None]
  - LIP DRY [None]
  - COLITIS ULCERATIVE [None]
  - DEPRESSION [None]
  - SUICIDAL IDEATION [None]
